FAERS Safety Report 5652954-3 (Version None)
Quarter: 2008Q1

REPORT INFORMATION
  Report Type: 
  Country: None (occurrence: None)
  Receive Date: 20080306
  Receipt Date: 20080229
  Transmission Date: 20080703
  Serious: Yes (Hospitalization, Other)
  Sender: FDA-Public Use
  Company Number: GB-ASTRAZENECA-2008GB00411

PATIENT
  Age: 36 Year
  Sex: Female
  Weight: 50 kg

DRUGS (6)
  1. QUETIAPINE FUMARATE [Suspect]
     Route: 048
     Dates: start: 20080212, end: 20080218
  2. VALPROATE SODIUM [Suspect]
  3. VALPROATE SODIUM [Suspect]
     Dosage: DOSE REDUCED
  4. VALPROATE SODIUM [Suspect]
     Dates: start: 20080125, end: 20080219
  5. DIAZEPAM [Concomitant]
  6. RISPERIDONE [Concomitant]

REACTIONS (8)
  - ALANINE AMINOTRANSFERASE INCREASED [None]
  - BLOOD CREATININE INCREASED [None]
  - GAMMA-GLUTAMYLTRANSFERASE INCREASED [None]
  - PRURITUS [None]
  - PYREXIA [None]
  - RASH ERYTHEMATOUS [None]
  - SEDATION [None]
  - TACHYCARDIA [None]
